FAERS Safety Report 18148033 (Version 1)
Quarter: 2020Q3

REPORT INFORMATION
  Report Type: Report from Study
  Country: None (occurrence: US)
  Receive Date: 20200814
  Receipt Date: 20200814
  Transmission Date: 20201103
  Serious: Yes (Other)
  Sender: FDA-Public Use
  Company Number: US-ABBVIE-20K-163-3520141-00

PATIENT
  Sex: Female

DRUGS (1)
  1. HUMIRA [Suspect]
     Active Substance: ADALIMUMAB
     Indication: RHEUMATOID ARTHRITIS
     Route: 058

REACTIONS (14)
  - Musculoskeletal disorder [Not Recovered/Not Resolved]
  - Gait inability [Not Recovered/Not Resolved]
  - Crohn^s disease [Unknown]
  - Discomfort [Recovering/Resolving]
  - Heat illness [Recovering/Resolving]
  - Cardiac disorder [Recovering/Resolving]
  - Anaemia [Recovering/Resolving]
  - Breast cancer female [Recovering/Resolving]
  - Venous haemorrhage [Recovered/Resolved]
  - Fatigue [Recovering/Resolving]
  - Arthropathy [Recovering/Resolving]
  - Pneumonia [Recovering/Resolving]
  - Haemorrhage [Unknown]
  - Neuropathy peripheral [Not Recovered/Not Resolved]

NARRATIVE: CASE EVENT DATE: 2019
